FAERS Safety Report 9109898 (Version 1)
Quarter: 2013Q1

REPORT INFORMATION
  Report Type: Spontaneous
  Country: GB (occurrence: US)
  Receive Date: 20130222
  Receipt Date: 20130222
  Transmission Date: 20140127
  Serious: No
  Sender: FDA-Public Use
  Company Number: GB-009507513-1302USA009161

PATIENT
  Age: 19 Month
  Sex: Male
  Weight: 11.6 kg

DRUGS (13)
  1. POSACONAZOLE [Suspect]
     Indication: ZYGOMYCOSIS
     Dosage: 200 MG, Q4H (120MG/KG/DAY)
  2. POSACONAZOLE [Suspect]
     Dosage: 120-300 MG/KG/DAY,Q4H
  3. POSACONAZOLE [Suspect]
     Dosage: 3000 MG/DAY
  4. POSACONAZOLE [Suspect]
     Dosage: 1500 MG,DAILY
  5. FAMOTIDINE [Suspect]
  6. PANTOPRAZOLE [Suspect]
  7. SUCRALFATE [Suspect]
  8. CARBOHYDRATES\FATTY ACIDS\MINERALS\PROTEIN [Suspect]
  9. CIPROFLOXACIN [Concomitant]
  10. CYCLOSPORINE [Concomitant]
  11. MIDAZOLAM [Concomitant]
  12. METOCLOPRAMIDE [Concomitant]
  13. NIFEDIPINE [Concomitant]

REACTIONS (2)
  - Malabsorption [Unknown]
  - Drug interaction [Unknown]
